FAERS Safety Report 6458940-8 (Version None)
Quarter: 2009Q4

REPORT INFORMATION
  Report Type: 
  Country: None (occurrence: None)
  Receive Date: 20091125
  Receipt Date: 20091125
  Transmission Date: 20100525
  Serious: Yes (Other)
  Sender: FDA-Public Use
  Company Number: None

PATIENT
  Sex: Female

DRUGS (1)
  1. LEVETIRACETAM [Suspect]
     Indication: CONVULSION
     Dosage: 500 BID
     Dates: start: 20081201

REACTIONS (5)
  - DECREASED APPETITE [None]
  - DRUG INTOLERANCE [None]
  - HEADACHE [None]
  - MYOCLONUS [None]
  - PRODUCT SUBSTITUTION ISSUE [None]
